FAERS Safety Report 6962666-1 (Version None)
Quarter: 2010Q3

REPORT INFORMATION
  Report Type: 
  Country: None (occurrence: None)
  Receive Date: 20100902
  Receipt Date: 20100825
  Transmission Date: 20110219
  Serious: Yes (Death, Other)
  Sender: FDA-Public Use
  Company Number: CA-ROXANE LABORATORIES, INC.-2010-DE-04641GD

PATIENT
  Age: 34 Year
  Sex: Male

DRUGS (2)
  1. ORAMORPH SR [Suspect]
     Indication: PAIN
  2. METHADONE HCL [Suspect]
     Indication: DRUG WITHDRAWAL MAINTENANCE THERAPY
     Dosage: 160 MG

REACTIONS (4)
  - COMA [None]
  - CONVULSION [None]
  - OVERDOSE [None]
  - PULMONARY OEDEMA [None]
